FAERS Safety Report 21726549 (Version 1)
Quarter: 2022Q4

REPORT INFORMATION
  Report Type: Spontaneous
  Country: FR (occurrence: FR)
  Receive Date: 20221214
  Receipt Date: 20221214
  Transmission Date: 20230112
  Serious: Yes (Hospitalization, Other)
  Sender: FDA-Public Use
  Company Number: FR-Indicus Pharma-000926

PATIENT
  Age: 24 Year
  Sex: Male

DRUGS (1)
  1. ACETAZOLAMIDE [Suspect]
     Active Substance: ACETAZOLAMIDE
     Indication: Iridocyclitis
     Route: 048

REACTIONS (6)
  - Retinopathy [Recovered/Resolved]
  - Intraocular pressure decreased [Recovered/Resolved]
  - Vitreous haemorrhage [Recovered/Resolved]
  - Retinal artery occlusion [Recovered/Resolved]
  - Pupillary reflex impaired [Recovered/Resolved]
  - Macular ischaemia [Recovered/Resolved]
